FAERS Safety Report 13556383 (Version 1)
Quarter: 2017Q2

REPORT INFORMATION
  Report Type: Spontaneous
  Country: US (occurrence: US)
  Receive Date: 20170517
  Receipt Date: 20170517
  Transmission Date: 20170830
  Serious: No
  Sender: FDA-Public Use
  Company Number: US-SA-2017SA033591

PATIENT
  Age: 67 Year
  Sex: Male

DRUGS (12)
  1. METFORMIN [Concomitant]
     Active Substance: METFORMIN HYDROCHLORIDE
  2. ISOSORBIDE DINITRATE. [Concomitant]
     Active Substance: ISOSORBIDE DINITRATE
  3. BRILINTA [Concomitant]
     Active Substance: TICAGRELOR
  4. SOLOSTAR [Concomitant]
     Active Substance: DEVICE
     Dates: start: 201701
  5. ASPIRIN. [Concomitant]
     Active Substance: ASPIRIN
  6. IRON [Concomitant]
     Active Substance: IRON
  7. CALCIUM CITRATE [Concomitant]
     Active Substance: CALCIUM CITRATE
  8. TOUJEO [Suspect]
     Active Substance: INSULIN GLARGINE
     Indication: TYPE 2 DIABETES MELLITUS
     Dosage: DOSE;28 UNITS  5 UNITS WEEKLY THEN INCREASING 3 UNITS WEEKLY TO A TARGET DAILY DOSE OF 60 UNIT
     Route: 065
     Dates: start: 201701
  9. GLIMEPIRIDE. [Concomitant]
     Active Substance: GLIMEPIRIDE
  10. RANEXA [Concomitant]
     Active Substance: RANOLAZINE
  11. FUROSEMIDE. [Concomitant]
     Active Substance: FUROSEMIDE
  12. MINERALS NOS/VITAMINS NOS [Concomitant]

REACTIONS (1)
  - Blood glucose increased [Unknown]

NARRATIVE: CASE EVENT DATE: 20170110
